FAERS Safety Report 18256899 (Version 13)
Quarter: 2025Q2

REPORT INFORMATION
  Report Type: Report from Study
  Country: CA (occurrence: CA)
  Receive Date: 20200911
  Receipt Date: 20250402
  Transmission Date: 20250716
  Serious: No
  Sender: TAKEDA
  Company Number: CA-TAKEDA-2019TUS064186

PATIENT
  Sex: Female

DRUGS (27)
  1. VEDOLIZUMAB [Suspect]
     Active Substance: VEDOLIZUMAB
     Indication: Crohn^s disease
  2. VEDOLIZUMAB [Suspect]
     Active Substance: VEDOLIZUMAB
  3. VEDOLIZUMAB [Suspect]
     Active Substance: VEDOLIZUMAB
  4. VEDOLIZUMAB [Suspect]
     Active Substance: VEDOLIZUMAB
  5. VEDOLIZUMAB [Suspect]
     Active Substance: VEDOLIZUMAB
  6. VEDOLIZUMAB [Suspect]
     Active Substance: VEDOLIZUMAB
  7. VEDOLIZUMAB [Suspect]
     Active Substance: VEDOLIZUMAB
  8. VEDOLIZUMAB [Suspect]
     Active Substance: VEDOLIZUMAB
  9. VEDOLIZUMAB [Suspect]
     Active Substance: VEDOLIZUMAB
  10. VEDOLIZUMAB [Suspect]
     Active Substance: VEDOLIZUMAB
  11. VEDOLIZUMAB [Suspect]
     Active Substance: VEDOLIZUMAB
  12. PREDNISONE [Concomitant]
     Active Substance: PREDNISONE
  13. AZATHIOPRINE [Concomitant]
     Active Substance: AZATHIOPRINE
  14. PANTOPRAZOLE SODIUM [Concomitant]
     Active Substance: PANTOPRAZOLE SODIUM
     Dosage: 40 MILLIGRAM, BID
  15. SYNTHROID [Concomitant]
     Active Substance: LEVOTHYROXINE SODIUM
  16. METOPROLOL [Concomitant]
     Active Substance: METOPROLOL
     Dosage: 50 MILLIGRAM, BID
  17. LOMOTIL [Concomitant]
     Active Substance: ATROPINE SULFATE\DIPHENOXYLATE HYDROCHLORIDE
     Dosage: 2.5 MILLIGRAM, TID
  18. CHOLESTYRAMINE [Concomitant]
     Active Substance: CHOLESTYRAMINE
     Dosage: 4 GRAM, BID
  19. PREMARIN [Concomitant]
     Active Substance: ESTROGENS, CONJUGATED
  20. GAVISCON [Concomitant]
     Active Substance: ALUMINUM HYDROXIDE\MAGNESIUM CARBONATE
     Dosage: UNK, BID
  21. GRAVOL [Concomitant]
     Active Substance: DIMENHYDRINATE
  22. IMURAN [Concomitant]
     Active Substance: AZATHIOPRINE
  23. METHOTREXATE SODIUM [Concomitant]
     Active Substance: METHOTREXATE SODIUM
  24. FOLIC ACID [Concomitant]
     Active Substance: FOLIC ACID
  25. ENTOCORT [Concomitant]
     Active Substance: BUDESONIDE
  26. COLESEVELAM [Concomitant]
     Active Substance: COLESEVELAM
  27. VITAMIN B12 [Concomitant]
     Active Substance: CYANOCOBALAMIN

REACTIONS (6)
  - Frequent bowel movements [Not Recovered/Not Resolved]
  - Abdominal pain [Recovered/Resolved]
  - Decreased appetite [Not Recovered/Not Resolved]
  - Nausea [Not Recovered/Not Resolved]
  - Diarrhoea [Unknown]
  - Constipation [Recovered/Resolved]
